FAERS Safety Report 17946883 (Version 1)
Quarter: 2020Q2

REPORT INFORMATION
  Report Type: Spontaneous
  Country: US (occurrence: US)
  Receive Date: 20200625
  Receipt Date: 20200625
  Transmission Date: 20200714
  Serious: Yes (Hospitalization)
  Sender: FDA-Public Use
  Company Number: None

PATIENT
  Sex: Female

DRUGS (14)
  1. BUPROPION. [Concomitant]
     Active Substance: BUPROPION
  2. OXYCODONE AND ACETAMINOPHEN [Concomitant]
     Active Substance: ACETAMINOPHEN\OXYCODONE HYDROCHLORIDE
  3. SPIRONOLACT [Concomitant]
     Active Substance: SPIRONOLACTONE
  4. CLONAZEPAM. [Concomitant]
     Active Substance: CLONAZEPAM
  5. NORTRIPTYLIN [Concomitant]
     Active Substance: NORTRIPTYLINE
  6. FUROSEMIDE. [Concomitant]
     Active Substance: FUROSEMIDE
  7. SOLIFENACIN [Concomitant]
     Active Substance: SOLIFENACIN
  8. METOPROL SUC, [Concomitant]
  9. ESTRADIOL. [Concomitant]
     Active Substance: ESTRADIOL
  10. GABAPENTIN. [Concomitant]
     Active Substance: GABAPENTIN
  11. RIVASTIGMINE. [Concomitant]
     Active Substance: RIVASTIGMINE
  12. DALFAMPRIDINE 10MG ER TAB [Suspect]
     Active Substance: DALFAMPRIDINE
     Indication: MULTIPLE SCLEROSIS
     Route: 048
     Dates: start: 20190927
  13. LEVOTHYROXIN [Concomitant]
     Active Substance: LEVOTHYROXINE
  14. PROMETHAZINE RANEXA [Concomitant]

REACTIONS (4)
  - Restless legs syndrome [None]
  - Migraine [None]
  - Drug hypersensitivity [None]
  - Paraesthesia [None]
